FAERS Safety Report 7088190-6 (Version None)
Quarter: 2010Q4

REPORT INFORMATION
  Report Type: 
  Country: None (occurrence: None)
  Receive Date: 20101028
  Receipt Date: 20101021
  Transmission Date: 20110411
  Serious: Yes (Other)
  Sender: FDA-Public Use
  Company Number: 2010AC000550

PATIENT
  Sex: Female

DRUGS (1)
  1. DIGOXIN [Suspect]

REACTIONS (14)
  - AGEUSIA [None]
  - AMNESIA [None]
  - ANHEDONIA [None]
  - ANOSMIA [None]
  - DEPRESSION [None]
  - DISTURBANCE IN ATTENTION [None]
  - ECONOMIC PROBLEM [None]
  - MULTIPLE INJURIES [None]
  - PAIN [None]
  - PNEUMONIA [None]
  - RASH [None]
  - RESPIRATORY TRACT INFECTION [None]
  - UNEVALUABLE EVENT [None]
  - VOMITING [None]
